FAERS Safety Report 10184803 (Version 1)
Quarter: 2014Q2

REPORT INFORMATION
  Report Type: Spontaneous
  Country: US (occurrence: None)
  Receive Date: 20140520
  Receipt Date: 20140520
  Transmission Date: 20141212
  Serious: Yes (Hospitalization)
  Sender: FDA-Public Use
  Company Number: None

PATIENT
  Age: 62 Year
  Sex: Female

DRUGS (4)
  1. ERLOTINIB [Suspect]
  2. HYDROMORPHONE [Concomitant]
     Indication: NEOPLASM MALIGNANT
     Route: 048
     Dates: start: 20121009, end: 20121031
  3. LACTULOSE [Concomitant]
  4. CALCIUM CARBONATE [Concomitant]

REACTIONS (4)
  - Haematuria [None]
  - Jaundice [None]
  - Alanine aminotransferase increased [None]
  - Aspartate aminotransferase increased [None]
